FAERS Safety Report 10054505 (Version 2)
Quarter: 2014Q2

REPORT INFORMATION
  Report Type: Spontaneous
  Country: US (occurrence: US)
  Receive Date: 20140402
  Receipt Date: 20140402
  Transmission Date: 20141212
  Serious: No
  Sender: FDA-Public Use
  Company Number: US-AMGEN-USASP2014017903

PATIENT
  Age: 40 Year
  Sex: Female

DRUGS (10)
  1. ENBREL [Suspect]
     Indication: HIDRADENITIS
     Dosage: 50 MG, 2 TIMES/WK
     Route: 058
     Dates: start: 20140219, end: 20140312
  2. MINOCYCLINE [Concomitant]
     Indication: HIDRADENITIS
     Dosage: 100 MG, BID
     Route: 048
     Dates: start: 20140109
  3. LIDEX [Concomitant]
     Indication: RASH
     Dosage: 0.05 %, BID
     Route: 061
     Dates: start: 20131119
  4. AMBIEN [Concomitant]
     Dosage: UNK
  5. LITHIUM [Concomitant]
     Dosage: UNK
  6. DEXILANT [Concomitant]
     Dosage: UNK
  7. LYRICA [Concomitant]
     Dosage: UNK
  8. NORCO [Concomitant]
     Dosage: UNK
  9. PRAVASTATIN [Concomitant]
     Dosage: UNK
  10. VENLAFAXINE [Concomitant]
     Dosage: UNK

REACTIONS (2)
  - Pain in extremity [Unknown]
  - Hypoaesthesia [Unknown]
